FAERS Safety Report 23564766 (Version 1)
Quarter: 2024Q1

REPORT INFORMATION
  Report Type: Spontaneous
  Country: US (occurrence: None)
  Receive Date: 20240223
  Receipt Date: 20240223
  Transmission Date: 20240410
  Serious: Yes (Death)
  Sender: FDA-Public Use
  Company Number: None

PATIENT
  Age: 73 Year
  Sex: Female

DRUGS (1)
  1. IBRANCE [Suspect]
     Active Substance: PALBOCICLIB
     Indication: Breast cancer female
     Dosage: FREQUENCY : AS DIRECTED;?TAKE 1 TABLE BY MOUTH 1 TIME A DAY FOR 21 DAYS, THEN 7 DA
     Route: 048
     Dates: start: 202210

REACTIONS (1)
  - Death [None]

NARRATIVE: CASE EVENT DATE: 20240128
